FAERS Safety Report 6600628-4 (Version None)
Quarter: 2010Q1

REPORT INFORMATION
  Report Type: 
  Country: None (occurrence: None)
  Receive Date: 20100223
  Receipt Date: 20100223
  Transmission Date: 20100710
  Serious: Yes (Life-Threatening, Hospitalization)
  Sender: FDA-Public Use
  Company Number: None

PATIENT
  Age: 79 Year
  Sex: Male
  Weight: 89.8122 kg

DRUGS (1)
  1. VISIPAQUE 270 [Suspect]
     Indication: SCAN
     Dosage: 100MLS ONCE IV BOLUS
     Route: 040
     Dates: start: 20100212, end: 20100212

REACTIONS (2)
  - CARDIAC ARREST [None]
  - CONTRAST MEDIA REACTION [None]
